FAERS Safety Report 20147679 (Version 3)
Quarter: 2021Q4

REPORT INFORMATION
  Report Type: Spontaneous
  Country: US (occurrence: US)
  Receive Date: 20211203
  Receipt Date: 20211213
  Transmission Date: 20220303
  Serious: Yes (Hospitalization)
  Sender: FDA-Public Use
  Company Number: US-SA-SAC20211128000427

PATIENT
  Age: 56 Year
  Sex: Female

DRUGS (26)
  1. AUBAGIO [Suspect]
     Active Substance: TERIFLUNOMIDE
     Indication: Multiple sclerosis
     Dosage: 14MG,QD
     Route: 048
     Dates: start: 202111
  2. ATIVAN [Concomitant]
     Active Substance: LORAZEPAM
     Dosage: UNK
  3. ALBUTEROL SULFATE [Concomitant]
     Active Substance: ALBUTEROL SULFATE
     Dosage: UNK
  4. VITAMIN D3 [Concomitant]
     Active Substance: CHOLECALCIFEROL
     Dosage: UNK
  5. VITAMINS NOS [Concomitant]
     Active Substance: VITAMINS
  6. AMBIEN [Concomitant]
     Active Substance: ZOLPIDEM TARTRATE
     Dosage: UNK
  7. MAGNESIUM [Concomitant]
     Active Substance: MAGNESIUM
     Dosage: UNK
  8. LEVOTHYROXINE [Concomitant]
     Active Substance: LEVOTHYROXINE
     Dosage: UNK
  9. FLUOXETINE HYDROCHLORIDE [Concomitant]
     Active Substance: FLUOXETINE HYDROCHLORIDE
     Dosage: UNK
  10. CELEBREX [Concomitant]
     Active Substance: CELECOXIB
     Dosage: UNK
  11. LYRICA [Concomitant]
     Active Substance: PREGABALIN
     Dosage: UNK
  12. CYCLOBENZAPRINE HYDROCHLORIDE [Concomitant]
     Active Substance: CYCLOBENZAPRINE HYDROCHLORIDE
     Dosage: UNK
  13. BACLOFEN [Concomitant]
     Active Substance: BACLOFEN
     Dosage: UNK
  14. ROPINIROLE [Concomitant]
     Active Substance: ROPINIROLE
     Dosage: UNK
  15. POTASSIUM [Concomitant]
     Active Substance: POTASSIUM
  16. ADDERALL [Concomitant]
     Active Substance: AMPHETAMINE ASPARTATE\AMPHETAMINE SULFATE\DEXTROAMPHETAMINE SACCHARATE\DEXTROAMPHETAMINE SULFATE
     Dosage: UNK
  17. AMITRIPTYLINE HYDROCHLORIDE [Concomitant]
     Active Substance: AMITRIPTYLINE HYDROCHLORIDE
     Dosage: UNK
  18. SYNTHROID [Concomitant]
     Active Substance: LEVOTHYROXINE SODIUM
     Dosage: UNK
  19. COPAXONE [Concomitant]
     Active Substance: GLATIRAMER ACETATE
  20. VITAMIN B12 [Concomitant]
     Active Substance: CYANOCOBALAMIN
  21. SELENIUM [Concomitant]
     Active Substance: SELENIUM
  22. ANCEF [Concomitant]
     Active Substance: CEFAZOLIN SODIUM
  23. HEPARIN [Concomitant]
     Active Substance: HEPARIN SODIUM
  24. ASPIRIN [Concomitant]
     Active Substance: ASPIRIN
  25. SPIRONOLACTONE [Concomitant]
     Active Substance: SPIRONOLACTONE
  26. LASIX [Concomitant]
     Active Substance: FUROSEMIDE

REACTIONS (4)
  - COVID-19 [Unknown]
  - SARS-CoV-2 test positive [Unknown]
  - Hyperhidrosis [Unknown]
  - Staphylococcal infection [Unknown]

NARRATIVE: CASE EVENT DATE: 20211103
